FAERS Safety Report 6372445-4 (Version None)
Quarter: 2009Q3

REPORT INFORMATION
  Report Type: 
  Country: None (occurrence: None)
  Receive Date: 20090924
  Receipt Date: 20080801
  Transmission Date: 20100115
  Serious: No
  Sender: FDA-Public Use
  Company Number: US-ASTRAZENECA-2008UW15306

PATIENT
  Age: 47 Year
  Sex: Female

DRUGS (9)
  1. SEROQUEL [Suspect]
     Route: 048
  2. SEROQUEL [Suspect]
     Route: 048
  3. CELEXA [Concomitant]
  4. DIOVAN [Concomitant]
  5. CLONAZEPAM [Concomitant]
  6. SINGULAIR [Concomitant]
  7. BENADRYL [Concomitant]
  8. PREVACID [Concomitant]
  9. VYTORIN [Concomitant]

REACTIONS (2)
  - ARTHRALGIA [None]
  - MYALGIA [None]
